FAERS Safety Report 8960887 (Version 1)
Quarter: 2012Q4

REPORT INFORMATION
  Report Type: 
  Country: BR (occurrence: BR)
  Receive Date: 20121213
  Receipt Date: 20121213
  Transmission Date: 20130627
  Serious: Yes (Other)
  Sender: FDA-Public Use
  Company Number: PHHY2012BR038433

PATIENT
  Sex: Female

DRUGS (7)
  1. SANDOSTATIN LAR [Suspect]
     Dosage: UNK UKN, 6 weeks each
  2. SANDOSTATIN LAR [Suspect]
     Dosage: 20 mg, UNK
     Route: 030
     Dates: start: 2004
  3. PURAN T4 [Concomitant]
  4. PREDNISONE [Concomitant]
  5. ALENDRONATE [Concomitant]
  6. METFORMIN [Concomitant]
  7. VITAMIN D3 [Concomitant]

REACTIONS (5)
  - Syncope [Unknown]
  - Labyrinthitis [Unknown]
  - Memory impairment [Recovering/Resolving]
  - Fall [Unknown]
  - Abasia [Unknown]
